FAERS Safety Report 4645675-7 (Version None)
Quarter: 2005Q2

REPORT INFORMATION
  Report Type: 
  Country: None (occurrence: None)
  Receive Date: 20050331
  Receipt Date: 20050221
  Transmission Date: 20051028
  Serious: No
  Sender: FDA-Public Use
  Company Number: 05P-163-0291383-00

PATIENT
  Age: 77 Year
  Weight: 65.7716 kg

DRUGS (7)
  1. HUMIRA [Suspect]
     Indication: RHEUMATOID ARTHRITIS
     Dosage: 40 MG, 1 IN 2 WK, SUBCUTANEOUS' 40 MG, 1 IN 3 WK, SUBCUTANEOUS
     Route: 058
     Dates: start: 20030101, end: 20040101
  2. HUMIRA [Suspect]
     Indication: RHEUMATOID ARTHRITIS
     Dosage: 40 MG, 1 IN 2 WK, SUBCUTANEOUS' 40 MG, 1 IN 3 WK, SUBCUTANEOUS
     Route: 058
     Dates: start: 20040101, end: 20050118
  3. BACTRIM [Suspect]
     Indication: URINARY TRACT INFECTION
     Dosage: PER ORAL
     Route: 048
     Dates: start: 20050101, end: 20050101
  4. PREDNISONE [Concomitant]
  5. PHENYTOIN SODIUM [Concomitant]
  6. MULTI-VITAMINS [Concomitant]
  7. TOCOPHEROL CONCENTRATE CAP [Concomitant]

REACTIONS (3)
  - DIARRHOEA [None]
  - URINARY TRACT INFECTION [None]
  - VOMITING [None]
